FAERS Safety Report 23636230 (Version 1)
Quarter: 2024Q1

REPORT INFORMATION
  Report Type: Spontaneous
  Country: US (occurrence: US)
  Receive Date: 20240315
  Receipt Date: 20240315
  Transmission Date: 20240409
  Serious: Yes (Other)
  Sender: FDA-Public Use
  Company Number: SCLX2400051

PATIENT
  Age: 65 Year
  Sex: Male

DRUGS (6)
  1. ZTLIDO [Suspect]
     Active Substance: LIDOCAINE
     Indication: Product used for unknown indication
     Dosage: SINGLE-DOSE TOPICAL SYSTEM, UNK
     Route: 061
     Dates: start: 2016
  2. INFLUENZA VIRUS VACCINE [Suspect]
     Active Substance: INFLUENZA VIRUS VACCINE
     Indication: Product used for unknown indication
     Dosage: UNK, UNK
     Dates: start: 2008
  3. UNSPECIFIED INGREDIENT [Concomitant]
     Active Substance: UNSPECIFIED INGREDIENT
     Indication: Product used for unknown indication
     Dosage: UNK
  4. UNIVERSAL EYE DROP [Concomitant]
     Indication: Product used for unknown indication
     Dosage: UNK
  5. PAIN RELIEF NOS [Concomitant]
     Active Substance: CAMPHOR (SYNTHETIC)\LEVOMENTHOL\MENTHYL SALICYLATE OR CAMPHOR (SYNTHETIC)\MENTHOL\MENTHYL SALICYLATE
     Indication: Product used for unknown indication
     Dosage: UNK, UNK
  6. NORCO [Concomitant]
     Active Substance: ACETAMINOPHEN\HYDROCODONE BITARTRATE
     Indication: Product used for unknown indication

REACTIONS (15)
  - Myocardial infarction [Unknown]
  - Lupus-like syndrome [Unknown]
  - Blindness [Unknown]
  - Nervous system disorder [Unknown]
  - Sleep deficit [Unknown]
  - Discomfort [Unknown]
  - Pain [Unknown]
  - Limb injury [Unknown]
  - Limb discomfort [Unknown]
  - Pain in extremity [Unknown]
  - Gait inability [Unknown]
  - Product dose omission issue [Unknown]
  - Expired product administered [Not Recovered/Not Resolved]
  - Product use issue [Unknown]
  - Off label use [Unknown]

NARRATIVE: CASE EVENT DATE: 20210914
